FAERS Safety Report 19858403 (Version 1)
Quarter: 2021Q3

REPORT INFORMATION
  Report Type: Report from Study
  Country: None (occurrence: US)
  Receive Date: 20210921
  Receipt Date: 20210921
  Transmission Date: 20211014
  Serious: Yes (Other)
  Sender: FDA-Public Use
  Company Number: US-ABBVIE-21K-163-4081552-00

PATIENT
  Sex: Male

DRUGS (2)
  1. JANSSEN COVID?19 VACCINE [Concomitant]
     Active Substance: AD26.COV2.S
     Indication: COVID-19 IMMUNISATION
     Dosage: JOHNSON + JOHNSON
     Route: 030
  2. HUMIRA [Suspect]
     Active Substance: ADALIMUMAB
     Indication: RHEUMATOID ARTHRITIS
     Dosage: CF
     Route: 058

REACTIONS (9)
  - Dysstasia [Not Recovered/Not Resolved]
  - Back pain [Not Recovered/Not Resolved]
  - Hyperaesthesia [Not Recovered/Not Resolved]
  - Nodule [Not Recovered/Not Resolved]
  - Heart disease congenital [Not Recovered/Not Resolved]
  - Gait disturbance [Not Recovered/Not Resolved]
  - Inflammation [Unknown]
  - Musculoskeletal disorder [Not Recovered/Not Resolved]
  - Rheumatoid arthritis [Not Recovered/Not Resolved]
